FAERS Safety Report 9159549 (Version 2)
Quarter: 2013Q1

REPORT INFORMATION
  Report Type: Spontaneous
  Country: US (occurrence: None)
  Receive Date: 20130212
  Receipt Date: 20130301
  Transmission Date: 20140127
  Serious: Yes (Other)
  Sender: FDA-Public Use
  Company Number: AUR-APL-2013-01144

PATIENT
  Age: 60 Year
  Sex: Female

DRUGS (3)
  1. CLINDAMYCIN (CLINDAMYCIN) [Suspect]
     Indication: PRODUCT USED FOR UNKNOWN INDICATION
     Dosage: STOPPED?1200 MG (300 MG, 1 IN 6 HR), ORAL
     Route: 048
  2. WARFARIN (WARFARIN) [Concomitant]
  3. ENOXAPARIN SODIUM (ENOXAPARIN SODIUM) [Concomitant]

REACTIONS (7)
  - Drug interaction [None]
  - Drug intolerance [None]
  - Gastrointestinal disorder [None]
  - International normalised ratio increased [None]
  - Cellulitis [None]
  - Infected lymphocele [None]
  - International normalised ratio fluctuation [None]
